FAERS Safety Report 23397615 (Version 1)
Quarter: 2024Q1

REPORT INFORMATION
  Report Type: Spontaneous
  Country: US (occurrence: US)
  Receive Date: 20240112
  Receipt Date: 20240112
  Transmission Date: 20240409
  Serious: No
  Sender: FDA-Public Use
  Company Number: US-PFIZER INC-202400006942

PATIENT
  Age: 55 Year
  Sex: Male
  Weight: 110.22 kg

DRUGS (4)
  1. PAXLOVID [Interacting]
     Active Substance: NIRMATRELVIR\RITONAVIR
     Indication: COVID-19
     Dosage: TAKE 2 NIRMATRELVIR WITH 1 RITONAVIR TWICE A DAY FOR 5 DAYS
     Route: 048
     Dates: start: 20231231, end: 20240102
  2. PROCARDIA XL [Interacting]
     Active Substance: NIFEDIPINE
     Indication: Raynaud^s phenomenon
     Dosage: 30MG ONCE A DAY
     Dates: start: 202304
  3. PROCARDIA XL [Interacting]
     Active Substance: NIFEDIPINE
     Dosage: 30MG TWICE A DAY
  4. PREDNISONE [Concomitant]
     Active Substance: PREDNISONE
     Indication: COVID-19
     Dosage: 50 MG, 1X/DAY
     Dates: start: 20231231, end: 20240103

REACTIONS (6)
  - Drug interaction [Unknown]
  - Drug level increased [Unknown]
  - Peripheral swelling [Recovering/Resolving]
  - Feeling hot [Unknown]
  - Oedema [Unknown]
  - Gait disturbance [Unknown]

NARRATIVE: CASE EVENT DATE: 20240102
